FAERS Safety Report 4894725-1 (Version None)
Quarter: 2006Q1

REPORT INFORMATION
  Report Type: 
  Country: None (occurrence: None)
  Receive Date: 20060127
  Receipt Date: 20060127
  Transmission Date: 20060701
  Serious: Yes (Disabling)
  Sender: FDA-Public Use
  Company Number: None

PATIENT
  Age: 78 Year
  Sex: Male

DRUGS (3)
  1. METFORMIN [Suspect]
     Indication: DIABETES MELLITUS NON-INSULIN-DEPENDENT
     Dosage: 1000 MG BID PO
     Route: 048
     Dates: start: 20050321, end: 20050805
  2. GLIPIZIDE [Suspect]
     Indication: DIABETES MELLITUS NON-INSULIN-DEPENDENT
     Dosage: 5 MG QD PO
     Route: 048
     Dates: start: 20050201, end: 20050828
  3. FORMOTEROL FUMARATE [Concomitant]

REACTIONS (9)
  - BLISTER [None]
  - EXCORIATION [None]
  - PAIN [None]
  - PEMPHIGOID [None]
  - PRURITUS [None]
  - RASH ERYTHEMATOUS [None]
  - SCAB [None]
  - SKIN HYPERPIGMENTATION [None]
  - SKIN LESION [None]
